FAERS Safety Report 4775372-9 (Version None)
Quarter: 2005Q3

REPORT INFORMATION
  Report Type: 
  Country: None (occurrence: None)
  Receive Date: 20050920
  Receipt Date: 20050906
  Transmission Date: 20060218
  Serious: Yes (Other)
  Sender: FDA-Public Use
  Company Number: 2005-132309-NL

PATIENT
  Age: 26 Year
  Sex: Female
  Weight: 172.4 kg

DRUGS (1)
  1. NUVARING [Suspect]
     Indication: CONTRACEPTION
     Dosage: NI VAGINAL
     Route: 067
     Dates: start: 20050101

REACTIONS (4)
  - BREAST PAIN [None]
  - CHEST PAIN [None]
  - HYPOAESTHESIA [None]
  - PARAESTHESIA [None]
